FAERS Safety Report 12549242 (Version 1)
Quarter: 2016Q3

REPORT INFORMATION
  Report Type: Report from Study
  Country: RO (occurrence: RO)
  Receive Date: 20160712
  Receipt Date: 20160712
  Transmission Date: 20161109
  Serious: Yes (Hospitalization)
  Sender: FDA-Public Use
  Company Number: RO-ABBVIE-16P-135-1661026-00

PATIENT
  Age: 58 Year
  Sex: Female

DRUGS (4)
  1. RIBAVIRIN. [Suspect]
     Active Substance: RIBAVIRIN
     Indication: HEPATIC CIRRHOSIS
     Dosage: 2 IN THE MORING AND 3 IN THE EVENING
     Route: 048
     Dates: start: 20160614, end: 20160627
  2. VIEKIRAX [Suspect]
     Active Substance: OMBITASVIR\PARITAPREVIR\RITONAVIR
     Indication: HEPATIC CIRRHOSIS
     Dosage: 2-0-0
     Route: 048
     Dates: start: 20160614
  3. RIBAVIRIN. [Suspect]
     Active Substance: RIBAVIRIN
     Route: 048
     Dates: start: 20160628
  4. EXVIERA [Suspect]
     Active Substance: DASABUVIR
     Indication: HEPATIC CIRRHOSIS
     Dosage: 1-0-1
     Route: 048
     Dates: start: 20160614

REACTIONS (15)
  - Fatigue [Unknown]
  - Epistaxis [Not Recovered/Not Resolved]
  - Unevaluable event [Not Recovered/Not Resolved]
  - Pruritus [Not Recovered/Not Resolved]
  - Vascular fragility [Not Recovered/Not Resolved]
  - Nausea [Not Recovered/Not Resolved]
  - Posture abnormal [Recovered/Resolved]
  - Swelling [Not Recovered/Not Resolved]
  - Tinnitus [Not Recovered/Not Resolved]
  - Chest pain [Not Recovered/Not Resolved]
  - Peripheral coldness [Not Recovered/Not Resolved]
  - Dizziness [Not Recovered/Not Resolved]
  - Chills [Not Recovered/Not Resolved]
  - Parosmia [Not Recovered/Not Resolved]
  - Gingival bleeding [Not Recovered/Not Resolved]

NARRATIVE: CASE EVENT DATE: 20160614
